FAERS Safety Report 7249819-2 (Version None)
Quarter: 2011Q1

REPORT INFORMATION
  Report Type: 
  Country: None (occurrence: None)
  Receive Date: 20110128
  Receipt Date: 20100430
  Transmission Date: 20110831
  Serious: No
  Sender: FDA-Public Use
  Company Number: A0857488A

PATIENT
  Age: 61 Year
  Sex: Female

DRUGS (8)
  1. WELLBUTRIN [Suspect]
     Indication: DEPRESSION
     Dosage: 150MG THREE TIMES PER DAY
     Route: 048
  2. ZOLOFT [Concomitant]
  3. BUPROPION HCL [Suspect]
     Indication: DEPRESSION
     Route: 048
     Dates: start: 20080101
  4. TRANXENE [Concomitant]
  5. ESTRADIOL [Concomitant]
  6. INDERAL [Concomitant]
  7. AYGESTIN [Concomitant]
  8. ACIPHEX [Concomitant]

REACTIONS (3)
  - THERAPEUTIC RESPONSE DECREASED [None]
  - CONDITION AGGRAVATED [None]
  - DRUG INEFFECTIVE [None]
